FAERS Safety Report 14773509 (Version 3)
Quarter: 2018Q2

REPORT INFORMATION
  Report Type: Report from Study
  Country: CA (occurrence: CA)
  Receive Date: 20180418
  Receipt Date: 20180522
  Transmission Date: 20180711
  Serious: Yes (Hospitalization, Other)
  Sender: FDA-Public Use
  Company Number: CA-GLAXOSMITHKLINE-CA2017GSK200628

PATIENT
  Sex: Male

DRUGS (4)
  1. MEPOLIZUMAB [Suspect]
     Active Substance: MEPOLIZUMAB
     Indication: ASTHMA
     Dosage: 100 MG, Z(MONTHLY)
     Route: 042
  2. MEPOLIZUMAB [Suspect]
     Active Substance: MEPOLIZUMAB
     Dosage: 100 MG, Z MONTHLY
     Route: 042
  3. MEPOLIZUMAB [Suspect]
     Active Substance: MEPOLIZUMAB
     Dosage: 100 MG, Z MONTHLY
     Route: 042
  4. MEPOLIZUMAB [Suspect]
     Active Substance: MEPOLIZUMAB
     Dosage: 100 MG, Z MONTHLY
     Route: 042

REACTIONS (14)
  - Asthma [Unknown]
  - Oxygen saturation decreased [Recovering/Resolving]
  - Productive cough [Recovering/Resolving]
  - Sputum discoloured [Recovering/Resolving]
  - Cough [Not Recovered/Not Resolved]
  - Bronchitis [Unknown]
  - Crepitations [Recovering/Resolving]
  - Dyspnoea [Not Recovered/Not Resolved]
  - Hallucination, visual [Recovering/Resolving]
  - Lung infection [Unknown]
  - Lung disorder [Unknown]
  - Generalised oedema [Recovering/Resolving]
  - Insomnia [Unknown]
  - Malaise [Unknown]
